FAERS Safety Report 10336017 (Version 2)
Quarter: 2014Q3

REPORT INFORMATION
  Report Type: Spontaneous
  Country: US (occurrence: US)
  Receive Date: 20140723
  Receipt Date: 20140723
  Transmission Date: 20150326
  Serious: No
  Sender: FDA-Public Use
  Company Number: US-BRISTOL-MYERS SQUIBB COMPANY-19493741

PATIENT
  Age: 60 Year
  Sex: Male
  Weight: 98.86 kg

DRUGS (7)
  1. COUMADIN [Suspect]
     Active Substance: WARFARIN SODIUM
     Indication: CEREBROVASCULAR ACCIDENT
     Dosage: STARTING DOSE:3.0,3.5 MG
     Dates: start: 201303
  2. ASPIRIN. [Concomitant]
     Active Substance: ASPIRIN
  3. CALCIUM CITRATE [Concomitant]
     Active Substance: CALCIUM CITRATE
  4. FISH OIL [Concomitant]
     Active Substance: FISH OIL
  5. OMEGA-3 ACIDS [Concomitant]
     Active Substance: OMEGA-3 FATTY ACIDS
     Dosage: 1DF=2000 UNITS NOS
  6. DSS [Concomitant]
     Active Substance: DOCUSATE SODIUM
  7. NEXIUM [Concomitant]
     Active Substance: ESOMEPRAZOLE MAGNESIUM

REACTIONS (3)
  - Dyspepsia [Unknown]
  - International normalised ratio fluctuation [Unknown]
  - Headache [Unknown]

NARRATIVE: CASE EVENT DATE: 2013
